FAERS Safety Report 17850167 (Version 1)
Quarter: 2020Q2

REPORT INFORMATION
  Report Type: Spontaneous
  Country: US (occurrence: US)
  Receive Date: 20200602
  Receipt Date: 20200602
  Transmission Date: 20200714
  Serious: Yes (Death, Hospitalization)
  Sender: FDA-Public Use
  Company Number: US-COVIS PHARMA B.V.-2020COV00217

PATIENT
  Age: 74 Year
  Sex: Female

DRUGS (8)
  1. OMEPRAZOLE MAGNESIUM. [Suspect]
     Active Substance: OMEPRAZOLE MAGNESIUM
     Route: 048
  2. IBUPROFEN. [Suspect]
     Active Substance: IBUPROFEN
     Route: 048
  3. FLUOXETINE [Suspect]
     Active Substance: FLUOXETINE HYDROCHLORIDE
     Route: 048
  4. LISINOPRIL. [Suspect]
     Active Substance: LISINOPRIL
     Route: 048
  5. PRAVASTATIN. [Suspect]
     Active Substance: PRAVASTATIN
     Route: 048
  6. RANITIDINE. [Suspect]
     Active Substance: RANITIDINE
     Route: 048
  7. DILTIAZEM EXTENDED RELEASE [Suspect]
     Active Substance: DILTIAZEM
     Route: 048
  8. ASPIRIN. [Suspect]
     Active Substance: ASPIRIN
     Route: 048

REACTIONS (3)
  - Pulseless electrical activity [Fatal]
  - Intentional overdose [Not Recovered/Not Resolved]
  - Atrioventricular block [Not Recovered/Not Resolved]
